FAERS Safety Report 10084752 (Version 1)
Quarter: 2014Q2

REPORT INFORMATION
  Report Type: Spontaneous
  Country: RU (occurrence: RU)
  Receive Date: 20140417
  Receipt Date: 20140417
  Transmission Date: 20141212
  Serious: Yes (Other)
  Sender: FDA-Public Use
  Company Number: RU-VIIV HEALTHCARE LIMITED-B0986715A

PATIENT
  Sex: Male

DRUGS (3)
  1. KIVEXA [Suspect]
     Indication: HIV INFECTION
  2. STOCRIN [Suspect]
     Indication: HIV INFECTION
  3. COMBIVIR [Suspect]
     Indication: HIV INFECTION

REACTIONS (3)
  - Lipodystrophy acquired [Recovered/Resolved]
  - Anaemia [Recovered/Resolved]
  - CD4 lymphocytes decreased [Not Recovered/Not Resolved]
